FAERS Safety Report 14807168 (Version 7)
Quarter: 2020Q1

REPORT INFORMATION
  Report Type: Report from Study
  Country: US (occurrence: US)
  Receive Date: 20180425
  Receipt Date: 20200122
  Transmission Date: 20200409
  Serious: Yes (Hospitalization)
  Sender: FDA-Public Use
  Company Number: US-ACTELION-A-NJ2018-171090

PATIENT
  Age: 11 Month
  Sex: Male

DRUGS (9)
  1. BETHANECHOL [Concomitant]
     Active Substance: BETHANECHOL
     Dosage: 2.3 MG, TID
     Dates: start: 20180608
  2. TRACLEER [Suspect]
     Active Substance: BOSENTAN
     Dosage: 16 MG IN 5ML WATER, QD
     Route: 048
  3. TRACLEER [Suspect]
     Active Substance: BOSENTAN
     Indication: PULMONARY ARTERIAL HYPERTENSION
     Dosage: 32 MG, BID VIA G TUBE
     Dates: start: 20180414
  4. RANITIDINE. [Concomitant]
     Active Substance: RANITIDINE
     Dosage: 3.3 ML, UNK
     Dates: start: 20180608
  5. TYLENOL [Concomitant]
     Active Substance: ACETAMINOPHEN
     Dosage: UNK, PRN
     Dates: start: 20180608
  6. REVATIO [Concomitant]
     Active Substance: SILDENAFIL CITRATE
     Dosage: UNK
  7. ATROVENT [Concomitant]
     Active Substance: IPRATROPIUM BROMIDE
     Dosage: UNK
     Dates: start: 20180608
  8. ALBUTEROL. [Concomitant]
     Active Substance: ALBUTEROL
     Dosage: 4 PUFFS, Q4HRS, PRN
     Dates: start: 20180608
  9. DIURIL [Concomitant]
     Active Substance: CHLOROTHIAZIDE
     Dosage: 4.9 MG, UNK
     Dates: start: 20180608

REACTIONS (7)
  - Secretion discharge [Unknown]
  - Emergency care [Unknown]
  - Nasopharyngitis [Unknown]
  - Rhinovirus infection [Recovering/Resolving]
  - Catheterisation cardiac [Not Recovered/Not Resolved]
  - Cough [Unknown]
  - Respiratory disorder [Recovered/Resolved]

NARRATIVE: CASE EVENT DATE: 20180703
